FAERS Safety Report 23238339 (Version 1)
Quarter: 2023Q4

REPORT INFORMATION
  Report Type: Spontaneous
  Country: US (occurrence: US)
  Receive Date: 20231129
  Receipt Date: 20231129
  Transmission Date: 20240110
  Serious: No
  Sender: FDA-Public Use
  Company Number: US-ELI_LILLY_AND_COMPANY-US202311015344

PATIENT
  Age: 76 Year
  Sex: Male

DRUGS (3)
  1. TADALAFIL [Suspect]
     Active Substance: TADALAFIL
     Indication: Product used for unknown indication
     Dosage: UNK UNK, UNKNOWN
     Route: 065
  2. OPSUMIT [Suspect]
     Active Substance: MACITENTAN
     Indication: Product used for unknown indication
     Dosage: UNK, UNKNOWN
     Route: 065
  3. TYVASO DPI [Suspect]
     Active Substance: TREPROSTINIL
     Indication: Pulmonary arterial hypertension
     Dosage: 16 UG, QID
     Route: 055
     Dates: start: 20231122

REACTIONS (5)
  - Oropharyngeal pain [Recovered/Resolved]
  - Oedema [Unknown]
  - Nasal congestion [Unknown]
  - Dyspnoea [Unknown]
  - Headache [Unknown]

NARRATIVE: CASE EVENT DATE: 20231122
